FAERS Safety Report 5336473-X (Version None)
Quarter: 2007Q2

REPORT INFORMATION
  Report Type: 
  Country: None (occurrence: None)
  Receive Date: 20070524
  Receipt Date: 20070514
  Transmission Date: 20071010
  Serious: Yes (Other)
  Sender: FDA-Public Use
  Company Number: GXKR2007NL04329

PATIENT
  Age: 37 Year
  Sex: Female
  Weight: 58 kg

DRUGS (2)
  1. DICLOFENAC (NGX)(DICLOFENAC) TABLET, 50MG [Suspect]
     Dosage: ORAL
     Route: 048
     Dates: start: 20070309, end: 20070410
  2. LAMISIL [Suspect]
     Indication: ONYCHOMYCOSIS
     Dosage: ORAL
     Route: 048
     Dates: start: 20070310, end: 20070416

REACTIONS (1)
  - AGEUSIA [None]
